FAERS Safety Report 25649591 (Version 1)
Quarter: 2025Q3

REPORT INFORMATION
  Report Type: Spontaneous
  Country: US (occurrence: US)
  Receive Date: 20250806
  Receipt Date: 20250806
  Transmission Date: 20251020
  Serious: Yes (Hospitalization, Other)
  Sender: B. BRAUN MEDICAL INC.
  Company Number: US-BBM-US-BBM-202502539

PATIENT
  Age: 7 Day
  Sex: Male
  Weight: 0.650 kg

DRUGS (14)
  1. DEXTROSE [Suspect]
     Active Substance: DEXTROSE MONOHYDRATE
     Indication: Parenteral nutrition
  2. TROPHAMINE [Suspect]
     Active Substance: ALANINE\ARGININE\ASPARTIC ACID\CYSTEINE HYDROCHLORIDE\GLUTAMIC ACID\GLYCINE\HISTIDINE\ISOLEUCINE\LEU
     Indication: Parenteral nutrition
  3. STERILE WATER FOR INJECTION [Suspect]
     Active Substance: WATER
     Indication: Parenteral nutrition
  4. DEXTROSE\HEPARIN SODIUM [Suspect]
     Active Substance: DEXTROSE\HEPARIN SODIUM
     Indication: Parenteral nutrition
  5. POTASSIUM CHLORIDE [Suspect]
     Active Substance: POTASSIUM CHLORIDE
     Indication: Parenteral nutrition
  6. DEXTROSE [Suspect]
     Active Substance: DEXTROSE MONOHYDRATE
     Indication: Parenteral nutrition
  7. DEXTROSE [Suspect]
     Active Substance: DEXTROSE MONOHYDRATE
     Indication: Parenteral nutrition
  8. CEFEPIME [Concomitant]
     Active Substance: CEFEPIME HYDROCHLORIDE
  9. VANCOMYCIN [Concomitant]
     Active Substance: VANCOMYCIN
  10. LINEZOLID [Concomitant]
     Active Substance: LINEZOLID
  11. MEROPENEM [Concomitant]
     Active Substance: MEROPENEM
  12. MICAFUNGIN [Concomitant]
     Active Substance: MICAFUNGIN SODIUM
  13. FLUCONAZOLE [Concomitant]
     Active Substance: FLUCONAZOLE
  14. VORICONAZOLE [Concomitant]
     Active Substance: VORICONAZOLE
     Indication: Antifungal treatment

REACTIONS (1)
  - Cholestasis [Recovered/Resolved]
